FAERS Safety Report 10261525 (Version 1)
Quarter: 2014Q2

REPORT INFORMATION
  Report Type: Spontaneous
  Country: US (occurrence: US)
  Receive Date: 20140626
  Receipt Date: 20140626
  Transmission Date: 20141212
  Serious: No
  Sender: FDA-Public Use
  Company Number: US-MYLANLABS-2014S1007643

PATIENT
  Age: 61 Year
  Sex: Female
  Weight: 79.38 kg

DRUGS (4)
  1. PERFOROMIST (FORMOTEROL FUMARATE) INHALATION SOLUTION [Suspect]
     Indication: CHRONIC OBSTRUCTIVE PULMONARY DISEASE
     Route: 055
     Dates: start: 201312
  2. DUONEB [Suspect]
  3. PULMICORT [Suspect]
  4. SINGULAIR [Concomitant]

REACTIONS (1)
  - Palpitations [Not Recovered/Not Resolved]
